FAERS Safety Report 8305551-5 (Version None)
Quarter: 2012Q2

REPORT INFORMATION
  Report Type: 
  Country: None (occurrence: None)
  Receive Date: 20120423
  Receipt Date: 20120412
  Transmission Date: 20120825
  Serious: Yes (Other)
  Sender: FDA-Public Use
  Company Number: JP-MERCK-1204USA02023

PATIENT
  Age: 45 Year
  Sex: Female

DRUGS (9)
  1. FOSAPREPITANT DIMEGLUMINE [Suspect]
     Dosage: DRIP
     Route: 042
     Dates: start: 20120412, end: 20120412
  2. DEXAMETHASONE SODIUM PHOSPHATE [Concomitant]
     Route: 065
     Dates: start: 20120412, end: 20120412
  3. FOSAPREPITANT DIMEGLUMINE [Suspect]
     Indication: PROPHYLAXIS OF NAUSEA AND VOMITING
     Dosage: DRIP
     Route: 042
     Dates: start: 20120322, end: 20120322
  4. FOSAPREPITANT DIMEGLUMINE [Suspect]
     Indication: NAUSEA
     Dosage: DRIP
     Route: 042
     Dates: start: 20120322, end: 20120322
  5. ALOXI [Suspect]
     Indication: PROPHYLAXIS OF NAUSEA AND VOMITING
     Dosage: DRIP
     Route: 042
     Dates: start: 20120412, end: 20120412
  6. ALOXI [Suspect]
     Indication: NAUSEA
     Dosage: DRIP
     Route: 042
     Dates: start: 20120412, end: 20120412
  7. RANITIDINE HYDROCHLORIDE [Concomitant]
     Route: 065
     Dates: start: 20120412, end: 20120412
  8. FOSAPREPITANT DIMEGLUMINE [Suspect]
     Dosage: DRIP
     Route: 042
     Dates: start: 20120412, end: 20120412
  9. CHLORPHENIRAMINE MALEATE [Suspect]
     Indication: URTICARIA
     Route: 042
     Dates: start: 20120412, end: 20120412

REACTIONS (4)
  - COLD SWEAT [None]
  - FEELING COLD [None]
  - FLUSHING [None]
  - DYSPNOEA [None]
